FAERS Safety Report 19911009 (Version 1)
Quarter: 2021Q4

REPORT INFORMATION
  Report Type: Spontaneous
  Country: FR (occurrence: FR)
  Receive Date: 20211004
  Receipt Date: 20211004
  Transmission Date: 20220303
  Serious: Yes (Other)
  Sender: FDA-Public Use
  Company Number: FR-AFSSAPS-MA20213568

PATIENT
  Age: 50 Year
  Sex: Female

DRUGS (3)
  1. OLANZAPINE [Interacting]
     Active Substance: OLANZAPINE
     Indication: Bipolar I disorder
     Dosage: 30 MILLIGRAM
     Route: 048
     Dates: start: 202103, end: 20210518
  2. TRIMEPRAZINE [Interacting]
     Active Substance: TRIMEPRAZINE
     Indication: Bipolar I disorder
     Dosage: 40 MILLIGRAM
     Route: 048
     Dates: start: 202103
  3. LOXAPINE [Interacting]
     Active Substance: LOXAPINE
     Indication: Bipolar I disorder
     Dosage: 150 MILLIGRAM
     Route: 048
     Dates: start: 20210121

REACTIONS (2)
  - Hyperprolactinaemia [Unknown]
  - Overdose [Recovered/Resolved]

NARRATIVE: CASE EVENT DATE: 20210402
